FAERS Safety Report 5932230-1 (Version None)
Quarter: 2008Q4

REPORT INFORMATION
  Report Type: 
  Country: None (occurrence: None)
  Receive Date: 20081028
  Receipt Date: 20081022
  Transmission Date: 20090506
  Serious: Yes (Other)
  Sender: FDA-Public Use
  Company Number: US-BRISTOL-MYERS SQUIBB COMPANY-14379903

PATIENT
  Age: 58 Year
  Sex: Male

DRUGS (6)
  1. CISPLATIN [Suspect]
     Indication: TRANSITIONAL CELL CARCINOMA
     Dosage: FIRST CYCLE: 09JUN08 DOSE REDUCED TO 50 MG/M2
     Route: 042
  2. GEMCITABINE [Suspect]
     Indication: TRANSITIONAL CELL CARCINOMA
     Dosage: FIRST CYCLE: 09JUN08 DOSE REDUCED TO 800 MG/M2
     Route: 042
  3. COMPAZINE [Concomitant]
     Dosage: EVERY 6-8 HOURS AS NEEDED
  4. EMEND [Concomitant]
  5. ATIVAN [Concomitant]
     Dosage: EVERY 6-8 HOURS AS NEEDED
  6. LASIX [Concomitant]
     Dosage: 20 MG/ DAY AS NEEDED

REACTIONS (1)
  - NEUTROPHIL COUNT DECREASED [None]
